FAERS Safety Report 14064410 (Version 2)
Quarter: 2018Q1

REPORT INFORMATION
  Report Type: Spontaneous
  Country: JP (occurrence: JP)
  Receive Date: 20171009
  Receipt Date: 20180309
  Transmission Date: 20180508
  Serious: Yes (Other)
  Sender: FDA-Public Use
  Company Number: JP-GUERBET-JP-20170169

PATIENT
  Age: 73 Year
  Sex: Female

DRUGS (2)
  1. HISTOACRYL [Concomitant]
     Active Substance: ENBUCRILATE
     Indication: THERAPEUTIC EMBOLISATION
     Route: 013
  2. LIPIODOL [Suspect]
     Active Substance: ETHIODIZED OIL
     Indication: THERAPEUTIC EMBOLISATION
     Route: 013

REACTIONS (4)
  - Muscle necrosis [Unknown]
  - Skin necrosis [Unknown]
  - Pulmonary embolism [Unknown]
  - Product use in unapproved indication [Unknown]
